FAERS Safety Report 12657325 (Version 2)
Quarter: 2016Q3

REPORT INFORMATION
  Report Type: Spontaneous
  Country: US (occurrence: US)
  Receive Date: 20160816
  Receipt Date: 20160901
  Transmission Date: 20161109
  Serious: Yes (Other)
  Sender: FDA-Public Use
  Company Number: US-TEVA-684178USA

PATIENT
  Age: 15 Year
  Sex: Male
  Weight: 51.8 kg

DRUGS (5)
  1. IMMUNE GLOBULIN [Concomitant]
     Active Substance: HUMAN IMMUNOGLOBULIN G
     Indication: HYPOGAMMAGLOBULINAEMIA
     Route: 058
  2. BUDESONIDE. [Suspect]
     Active Substance: BUDESONIDE
     Indication: ADRENOCORTICAL STEROID THERAPY
     Dosage: BEGUN ON LOW-DOSE (HIGHEST DOSE, 6 MG ON ALTERNATE)
     Route: 048
  3. ITRACONAZOLE. [Interacting]
     Active Substance: ITRACONAZOLE
     Indication: ANTIFUNGAL TREATMENT
     Dosage: 400 MILLIGRAM DAILY;
     Route: 048
  4. SALMETEROL, FLUTICASONE PROPIONATE [Interacting]
     Active Substance: FLUTICASONE PROPIONATE\SALMETEROL XINAFOATE
     Indication: BRONCHIECTASIS
     Route: 055
  5. IMMUNE GLOBULIN [Concomitant]
     Active Substance: HUMAN IMMUNOGLOBULIN G
     Indication: HYPOGAMMAGLOBULINAEMIA
     Route: 042

REACTIONS (5)
  - Weight increased [Unknown]
  - Cushing^s syndrome [Unknown]
  - Lung infection [Recovering/Resolving]
  - Fungal infection [Recovering/Resolving]
  - Drug interaction [Recovering/Resolving]
